FAERS Safety Report 12741211 (Version 2)
Quarter: 2016Q3

REPORT INFORMATION
  Report Type: Spontaneous
  Country: EC (occurrence: EC)
  Receive Date: 20160914
  Receipt Date: 20160929
  Transmission Date: 20161109
  Serious: Yes (Other)
  Sender: FDA-Public Use
  Company Number: EC-AMGEN-ECUSP2016122605

PATIENT
  Age: 18 Year
  Sex: Female

DRUGS (2)
  1. ENBREL [Suspect]
     Active Substance: ETANERCEPT
     Dosage: 50 MG, UNK
     Route: 065
  2. ENBREL [Suspect]
     Active Substance: ETANERCEPT
     Indication: JUVENILE IDIOPATHIC ARTHRITIS
     Dosage: 25 MG, UNK
     Route: 065

REACTIONS (3)
  - Juvenile idiopathic arthritis [Unknown]
  - Disease progression [Unknown]
  - Product quality issue [Unknown]
